FAERS Safety Report 4356406-2 (Version None)
Quarter: 2004Q2

REPORT INFORMATION
  Report Type: 
  Country: None (occurrence: None)
  Receive Date: 20040511
  Receipt Date: 20040511
  Transmission Date: 20050107
  Serious: Yes (Hospitalization)
  Sender: FDA-Public Use
  Company Number: None

PATIENT
  Sex: Male
  Weight: 105 kg

DRUGS (8)
  1. CEFEPIME [Suspect]
     Indication: PNEUMONIA
     Dosage: 1 GM Q12 H IV
     Route: 042
     Dates: start: 20040424, end: 20040501
  2. TPN [Concomitant]
  3. OXYGEN [Concomitant]
  4. METOPROLOL [Concomitant]
  5. PHENYTOIN [Concomitant]
  6. ENOXAPARIN SODIUM [Concomitant]
  7. MULTIVITAMIN [Concomitant]
  8. FUROSEMIDE [Concomitant]

REACTIONS (4)
  - EOSINOPHILS URINE PRESENT [None]
  - HAEMODYNAMIC INSTABILITY [None]
  - HYPOXIA [None]
  - RENAL FAILURE ACUTE [None]
